FAERS Safety Report 6749208-0 (Version None)
Quarter: 2010Q2

REPORT INFORMATION
  Report Type: 
  Country: None (occurrence: None)
  Receive Date: 20100601
  Receipt Date: 20100430
  Transmission Date: 20101027
  Serious: No
  Sender: FDA-Public Use
  Company Number: US-BAYER-201015034BCC

PATIENT
  Age: 67 Year
  Sex: Female
  Weight: 61 kg

DRUGS (9)
  1. ALEVE (CAPLET) [Suspect]
     Indication: MYALGIA
     Dosage: UNIT DOSE: 220 MG
     Route: 048
     Dates: start: 20090101
  2. EXFORGE [Concomitant]
     Route: 065
  3. ALLEGRA [Concomitant]
     Route: 065
  4. BENICAR [Concomitant]
     Route: 065
  5. HCTZ [Concomitant]
     Route: 065
  6. CENSTIN [Concomitant]
     Route: 065
  7. FLEXERIL [Concomitant]
     Route: 065
  8. RESTORIL [Concomitant]
     Route: 065
  9. MOBIC [Concomitant]
     Route: 065

REACTIONS (1)
  - FLUID RETENTION [None]
